FAERS Safety Report 5311587-9 (Version None)
Quarter: 2007Q2

REPORT INFORMATION
  Report Type: 
  Country: None (occurrence: None)
  Receive Date: 20070430
  Receipt Date: 20070416
  Transmission Date: 20071010
  Serious: Yes (Life-Threatening)
  Sender: FDA-Public Use
  Company Number: IT-ROCHE-493295

PATIENT
  Age: 49 Year
  Sex: Female

DRUGS (1)
  1. ROCEPHIN [Suspect]
     Indication: DRUG USE FOR UNKNOWN INDICATION
     Dosage: FORM REPORTED AS VIAL. STRENGTH REPORTED AS ^UNK MG^.
     Route: 030
     Dates: start: 20070406, end: 20070406

REACTIONS (4)
  - ABDOMINAL PAIN [None]
  - HYPOTENSION [None]
  - OEDEMA [None]
  - URTICARIA [None]
